FAERS Safety Report 16368386 (Version 1)
Quarter: 2019Q2

REPORT INFORMATION
  Report Type: Spontaneous
  Country: TH (occurrence: TH)
  Receive Date: 20190529
  Receipt Date: 20190529
  Transmission Date: 20190711
  Serious: Yes (Disabling, Other)
  Sender: FDA-Public Use
  Company Number: TH-APOPHARMA USA, INC.-2019AP015251

PATIENT
  Age: 7 Month
  Sex: Male
  Weight: 8.4 kg

DRUGS (4)
  1. ALKERAN [Suspect]
     Active Substance: MELPHALAN
     Indication: RETINOBLASTOMA
     Dosage: 3 MG, Q.M.T.
     Route: 013
     Dates: start: 20170531, end: 20170531
  2. CARBOPLATIN. [Concomitant]
     Active Substance: CARBOPLATIN
     Indication: RETINOBLASTOMA
     Dosage: 14 MG/KG, QD
     Route: 042
     Dates: start: 20170508, end: 20170509
  3. ETOPOSIDE. [Concomitant]
     Active Substance: ETOPOSIDE
     Indication: RETINOBLASTOMA
     Dosage: 6 MG/KG, QD
     Route: 042
     Dates: start: 20170508, end: 20170509
  4. VINCRISTINE [Concomitant]
     Active Substance: VINCRISTINE
     Indication: RETINOBLASTOMA
     Dosage: 0.05 MG/KG, QD
     Route: 042
     Dates: start: 20170508, end: 20170508

REACTIONS (1)
  - Retinal detachment [Recovered/Resolved]

NARRATIVE: CASE EVENT DATE: 20170719
